FAERS Safety Report 5737964-X (Version None)
Quarter: 2008Q2

REPORT INFORMATION
  Report Type: 
  Country: None (occurrence: None)
  Receive Date: 20080512
  Receipt Date: 20080512
  Transmission Date: 20081010
  Serious: Yes (Hospitalization)
  Sender: FDA-Public Use
  Company Number: None

PATIENT
  Sex: Female
  Weight: 63.6 kg

DRUGS (3)
  1. TEMOZOLOMIDE [Suspect]
     Dosage: 1250 MG
  2. EPREX [Concomitant]
  3. DECADRON [Concomitant]

REACTIONS (4)
  - ANAEMIA [None]
  - CHEST PAIN [None]
  - DEEP VEIN THROMBOSIS [None]
  - EMBOLISM [None]
